FAERS Safety Report 4870274-1 (Version None)
Quarter: 2005Q4

REPORT INFORMATION
  Report Type: 
  Country: None (occurrence: None)
  Receive Date: 20051228
  Receipt Date: 20051207
  Transmission Date: 20060501
  Serious: Yes (Other)
  Sender: FDA-Public Use
  Company Number: PT200512002609

PATIENT

DRUGS (1)
  1. OLANZAPINE [Suspect]
     Indication: SCHIZOPHRENIA
     Dosage: 10 MG, 3/D, ORAL
     Route: 048
     Dates: start: 20030101

REACTIONS (2)
  - OPTIC NEURITIS [None]
  - PRESCRIBED OVERDOSE [None]
